FAERS Safety Report 7099127-8 (Version None)
Quarter: 2010Q4

REPORT INFORMATION
  Report Type: 
  Country: None (occurrence: None)
  Receive Date: 20101112
  Receipt Date: 20101104
  Transmission Date: 20110411
  Serious: Yes (Other)
  Sender: FDA-Public Use
  Company Number: B0682862A

PATIENT
  Sex: Female

DRUGS (7)
  1. ZOPHREN [Suspect]
     Indication: PREMEDICATION
     Dosage: 8MG CYCLIC
     Route: 042
     Dates: start: 20100825, end: 20101006
  2. TAXOTERE [Suspect]
     Indication: BREAST CANCER
     Dosage: 155MG CYCLIC
     Route: 042
     Dates: start: 20100825, end: 20101006
  3. DEXAMETHASONE [Suspect]
     Indication: PREMEDICATION
     Dosage: 20MG CYCLIC
     Route: 042
     Dates: start: 20100825, end: 20101006
  4. TARDYFERON [Suspect]
     Route: 048
  5. ARANESP [Suspect]
     Route: 058
  6. ZANTAC [Suspect]
     Indication: PREMEDICATION
     Dosage: 50MG CYCLIC
     Route: 042
     Dates: start: 20100825, end: 20101006
  7. ATARAX [Suspect]
     Indication: PREMEDICATION
     Dosage: 25MG CYCLIC
     Route: 042
     Dates: start: 20100825, end: 20101006

REACTIONS (2)
  - MYALGIA [None]
  - PARAESTHESIA [None]
